FAERS Safety Report 20544673 (Version 1)
Quarter: 2022Q1

REPORT INFORMATION
  Report Type: Spontaneous
  Country: US (occurrence: US)
  Receive Date: 20220303
  Receipt Date: 20220303
  Transmission Date: 20220424
  Serious: Yes (Hospitalization, Other)
  Sender: FDA-Public Use
  Company Number: US-SANOFI-00989087

PATIENT
  Age: 36 Year
  Sex: Male

DRUGS (2)
  1. LOVENOX [Suspect]
     Active Substance: ENOXAPARIN SODIUM
     Indication: Factor V Leiden mutation
     Dosage: 90 MG, BID
  2. WARFARIN [Concomitant]
     Active Substance: WARFARIN
     Indication: Deep vein thrombosis
     Dosage: UNK

REACTIONS (4)
  - Haemoglobin decreased [Recovered/Resolved]
  - Hepatic haemorrhage [Recovered/Resolved]
  - Product prescribing issue [Unknown]
  - Extra dose administered [Unknown]
